FAERS Safety Report 13801059 (Version 1)
Quarter: 2017Q3

REPORT INFORMATION
  Report Type: Spontaneous
  Country: US (occurrence: US)
  Receive Date: 20170727
  Receipt Date: 20170727
  Transmission Date: 20171127
  Serious: Yes (Hospitalization)
  Sender: FDA-Public Use
  Company Number: US-PFIZER INC-2017320431

PATIENT
  Sex: Female

DRUGS (4)
  1. EFFEXOR XR [Suspect]
     Active Substance: VENLAFAXINE HYDROCHLORIDE
     Dosage: 225 MG, DAILY
  2. METHOTREXATE SODIUM. [Suspect]
     Active Substance: METHOTREXATE SODIUM
     Dosage: 20 MG, WEEKLY
  3. GABAPENTIN. [Suspect]
     Active Substance: GABAPENTIN
     Dosage: 300 MG, 3X/DAY
  4. SULFASALAZINE. [Suspect]
     Active Substance: SULFASALAZINE
     Dosage: 2 G, 2X/DAY

REACTIONS (20)
  - Joint stiffness [Unknown]
  - Headache [Unknown]
  - Muscular weakness [Unknown]
  - Oedema [Unknown]
  - Joint swelling [Unknown]
  - Blood bilirubin decreased [Unknown]
  - Arthralgia [Unknown]
  - Visual impairment [Unknown]
  - Myalgia [Unknown]
  - Blood potassium increased [Unknown]
  - Dehydration [Unknown]
  - Synovitis [Unknown]
  - Blood urea increased [Unknown]
  - Musculoskeletal stiffness [Unknown]
  - Back pain [Unknown]
  - Hypoaesthesia [Unknown]
  - Stress [Unknown]
  - Paraesthesia [Unknown]
  - Insomnia [Unknown]
  - Photosensitivity reaction [Unknown]
